FAERS Safety Report 7218734-2 (Version None)
Quarter: 2011Q1

REPORT INFORMATION
  Report Type: 
  Country: None (occurrence: None)
  Receive Date: 20110110
  Receipt Date: 20100211
  Transmission Date: 20110831
  Serious: Yes (Death)
  Sender: FDA-Public Use
  Company Number: US-ABBOTT-10P-163-0625911-00

PATIENT
  Sex: Male

DRUGS (3)
  1. OXYCONTIN [Suspect]
     Indication: PAIN MANAGEMENT
  2. VICODIN [Suspect]
     Indication: BREAKTHROUGH PAIN
     Dosage: 120 TABLETS IN 11 DAYS
     Dates: start: 20090101, end: 20090101
  3. VICODIN [Suspect]
     Indication: ANALGESIC THERAPY

REACTIONS (1)
  - ACCIDENTAL OVERDOSE [None]
